FAERS Safety Report 9299494 (Version 1)
Quarter: 2013Q2

REPORT INFORMATION
  Report Type: Spontaneous
  Country: CA (occurrence: CA)
  Receive Date: 20130521
  Receipt Date: 20130521
  Transmission Date: 20140414
  Serious: Yes (Hospitalization)
  Sender: FDA-Public Use
  Company Number: CA-AMGEN-CANSP2013034461

PATIENT
  Age: 84 Year
  Sex: Female

DRUGS (7)
  1. PROLIA [Suspect]
     Indication: OSTEOPOROSIS POSTMENOPAUSAL
     Dosage: UNK
     Dates: start: 20130422
  2. METOPROLOL [Concomitant]
  3. ADALAT [Concomitant]
  4. PANTOLOC                           /01263204/ [Concomitant]
  5. CRESTOR [Concomitant]
  6. BICARBONATE [Concomitant]
  7. IRON SUPPLEMENT WITH VIT C + HERBS [Concomitant]

REACTIONS (12)
  - Malaise [Unknown]
  - Blood creatinine abnormal [Unknown]
  - Blood calcium decreased [Unknown]
  - Diarrhoea [Unknown]
  - Tinnitus [Unknown]
  - Tremor [Unknown]
  - Abdominal discomfort [Unknown]
  - Nausea [Unknown]
  - Vomiting [Unknown]
  - Arthralgia [Unknown]
  - Back pain [Unknown]
  - Urticaria [Unknown]
